FAERS Safety Report 5478767-3 (Version None)
Quarter: 2007Q4

REPORT INFORMATION
  Report Type: 
  Country: None (occurrence: None)
  Receive Date: 20071005
  Receipt Date: 20071001
  Transmission Date: 20080405
  Serious: Yes (Hospitalization)
  Sender: FDA-Public Use
  Company Number: DE-MERCK-0708DEU00193

PATIENT
  Age: 6 Year
  Sex: Male
  Weight: 21 kg

DRUGS (3)
  1. SINGULAIR [Suspect]
     Indication: HYPERSENSITIVITY
     Route: 048
     Dates: start: 20070627, end: 20070714
  2. TERBUTALINE SULFATE [Concomitant]
     Indication: COUGH
     Route: 048
     Dates: start: 20070627, end: 20070714
  3. MOMETASONE FUROATE [Concomitant]
     Indication: NASAL CONGESTION
     Dates: start: 20070627, end: 20070714

REACTIONS (4)
  - ABNORMAL BEHAVIOUR [None]
  - AGGRESSION [None]
  - CONJUNCTIVITIS [None]
  - TIC [None]
